FAERS Safety Report 7578384-5 (Version None)
Quarter: 2011Q2

REPORT INFORMATION
  Report Type: 
  Country: None (occurrence: None)
  Receive Date: 20110628
  Receipt Date: 20101213
  Transmission Date: 20111010
  Serious: Yes (Other)
  Sender: FDA-Public Use
  Company Number: GXBR2011US00685

PATIENT
  Sex: Male
  Weight: 126.98 kg

DRUGS (2)
  1. ATENOLOL [Suspect]
     Indication: BLOOD PRESSURE
  2. PROAMATINE [Concomitant]
     Dosage: 5 MG, TID

REACTIONS (6)
  - LOSS OF CONSCIOUSNESS [None]
  - PATELLA FRACTURE [None]
  - PAIN IN EXTREMITY [None]
  - PRESYNCOPE [None]
  - FALL [None]
  - ANKLE FRACTURE [None]
